FAERS Safety Report 17762341 (Version 7)
Quarter: 2022Q1

REPORT INFORMATION
  Report Type: Spontaneous
  Country: PL (occurrence: PL)
  Receive Date: 20200508
  Receipt Date: 20220323
  Transmission Date: 20220423
  Serious: Yes (Hospitalization, Other)
  Sender: FDA-Public Use
  Company Number: PL-ORION CORPORATION ORION PHARMA-SOLO2020-0017

PATIENT
  Age: 56 Year
  Sex: Female

DRUGS (20)
  1. UNSPECIFIED INGREDIENT [Suspect]
     Active Substance: UNSPECIFIED INGREDIENT
     Indication: Otitis media acute
     Dosage: UNK
  2. UNSPECIFIED INGREDIENT [Suspect]
     Active Substance: UNSPECIFIED INGREDIENT
     Dosage: UNK
     Route: 065
  3. CEFUROXIME [Suspect]
     Active Substance: CEFUROXIME
     Indication: Otitis media acute
  4. CEFUROXIME [Suspect]
     Active Substance: CEFUROXIME
     Dosage: UNK
     Route: 065
  5. COCARBOXYLASE [Suspect]
     Active Substance: COCARBOXYLASE
     Indication: Otitis media acute
     Route: 065
  6. COCARBOXYLASE [Suspect]
     Active Substance: COCARBOXYLASE
     Dosage: UNK
  7. CLARITHROMYCIN [Suspect]
     Active Substance: CLARITHROMYCIN
     Indication: Pneumonia mycoplasmal
     Dosage: UNK
     Route: 042
  8. CLARITHROMYCIN [Suspect]
     Active Substance: CLARITHROMYCIN
     Dosage: UNK
     Route: 065
  9. HETASTARCH [Suspect]
     Active Substance: HETASTARCH
     Indication: Pneumonia mycoplasmal
     Route: 042
  10. HETASTARCH [Suspect]
     Active Substance: HETASTARCH
     Dosage: UNK
  11. PENTOXIFYLLINE [Suspect]
     Active Substance: PENTOXIFYLLINE
     Indication: Pneumonia mycoplasmal
     Dosage: UNK
     Route: 042
  12. PENTOXIFYLLINE [Suspect]
     Active Substance: PENTOXIFYLLINE
     Route: 065
  13. METHYLPREDNISOLONE [Suspect]
     Active Substance: METHYLPREDNISOLONE
     Indication: Pneumonia mycoplasmal
     Route: 042
  14. KETOCONAZOLE [Suspect]
     Active Substance: KETOCONAZOLE
     Indication: Otitis media acute
     Dosage: UNK
     Route: 065
  15. KETOCONAZOLE [Suspect]
     Active Substance: KETOCONAZOLE
  16. OMEPRAZOLE [Suspect]
     Active Substance: OMEPRAZOLE
     Indication: Pneumonia mycoplasmal
     Dosage: UNK
     Route: 042
  17. OMEPRAZOLE [Suspect]
     Active Substance: OMEPRAZOLE
     Dosage: UNK
     Route: 042
  18. LIDOCAINE HYDROCHLORIDE [Suspect]
     Active Substance: LIDOCAINE HYDROCHLORIDE
     Indication: Otitis media acute
     Dosage: UNK
  19. LIDOCAINE HYDROCHLORIDE [Suspect]
     Active Substance: LIDOCAINE HYDROCHLORIDE
     Dosage: UNK
     Route: 065
  20. OXYGEN [Concomitant]
     Active Substance: OXYGEN
     Indication: Product used for unknown indication
     Dosage: 2.5 ATA, 3X20MIN, 15TH SESSION
     Route: 065

REACTIONS (5)
  - Oedema peripheral [Unknown]
  - Hypokalaemia [Unknown]
  - Electrolyte imbalance [Unknown]
  - Drug ineffective [Unknown]
  - Off label use [Unknown]
